FAERS Safety Report 8613634-5 (Version None)
Quarter: 2012Q3

REPORT INFORMATION
  Report Type: 
  Country: None (occurrence: None)
  Receive Date: 20120823
  Receipt Date: 20120809
  Transmission Date: 20120928
  Serious: Yes (Hospitalization, Other)
  Sender: FDA-Public Use
  Company Number: US-009507513-2012SP014009

PATIENT

DRUGS (1)
  1. NUVARING [Suspect]
     Indication: CONTRACEPTION
     Dosage: UNK
     Route: 067
     Dates: start: 20080701, end: 20090901

REACTIONS (38)
  - SEASONAL ALLERGY [None]
  - GASTROOESOPHAGEAL REFLUX DISEASE [None]
  - TENSION HEADACHE [None]
  - CARBUNCLE [None]
  - HAEMORRHOIDS [None]
  - RECTAL HAEMORRHAGE [None]
  - BENIGN INTRACRANIAL HYPERTENSION [None]
  - VOMITING [None]
  - PYELONEPHRITIS [None]
  - THYROIDITIS [None]
  - ABDOMINAL PAIN [None]
  - INTERNATIONAL NORMALISED RATIO INCREASED [None]
  - HYPERSENSITIVITY [None]
  - DYSKINESIA [None]
  - BASEDOW'S DISEASE [None]
  - MIGRAINE [None]
  - GENITAL HERPES [None]
  - DRUG HYPERSENSITIVITY [None]
  - DYSPNOEA [None]
  - NECK PAIN [None]
  - HEADACHE [None]
  - ANXIETY [None]
  - TONSILLAR DISORDER [None]
  - ASTHMA [None]
  - VENTRICULAR EXTRASYSTOLES [None]
  - RESTLESS LEGS SYNDROME [None]
  - TREMOR [None]
  - NERVOUSNESS [None]
  - CEREBRAL THROMBOSIS [None]
  - DEEP VEIN THROMBOSIS [None]
  - DEPRESSION [None]
  - OROPHARYNGEAL PAIN [None]
  - DERMATITIS CONTACT [None]
  - HAEMORRHAGIC DISORDER [None]
  - NERVOUS SYSTEM DISORDER [None]
  - PHLEBITIS [None]
  - SINUSITIS [None]
  - MIGRAINE WITH AURA [None]
